FAERS Safety Report 25090196 (Version 1)
Quarter: 2025Q1

REPORT INFORMATION
  Report Type: Spontaneous
  Country: US (occurrence: None)
  Receive Date: 20250317
  Receipt Date: 20250317
  Transmission Date: 20250409
  Serious: Yes (Hospitalization)
  Sender: FDA-CTU
  Company Number: None

PATIENT
  Age: 58 Year
  Sex: Female
  Weight: 85.5 kg

DRUGS (6)
  1. TIRZEPATIDE [Suspect]
     Active Substance: TIRZEPATIDE
     Indication: Obesity
     Dates: start: 20250210, end: 20250303
  2. CITALOPRAM [Concomitant]
     Active Substance: CITALOPRAM
  3. BUPROPION [Concomitant]
     Active Substance: BUPROPION
  4. VITAMIN B COMPLEX [Concomitant]
     Active Substance: CYANOCOBALAMIN\DEXPANTHENOL\NIACINAMIDE\PYRIDOXINE HYDROCHLORIDE\RIBOFLAVIN 5^-PHOSPHATE SODIUM\THIA
  5. VITAMIN D [Concomitant]
     Active Substance: VITAMIN D NOS
  6. Still softener [Concomitant]

REACTIONS (11)
  - Therapy cessation [None]
  - Abdominal pain upper [None]
  - Nausea [None]
  - Taste disorder [None]
  - Asthenia [None]
  - Hypophagia [None]
  - Muscle tightness [None]
  - Pain in extremity [None]
  - Pain in extremity [None]
  - Stent placement [None]
  - Thrombosis [None]

NARRATIVE: CASE EVENT DATE: 20250314
